FAERS Safety Report 6708360-3 (Version None)
Quarter: 2010Q2

REPORT INFORMATION
  Report Type: 
  Country: None (occurrence: None)
  Receive Date: 20100503
  Receipt Date: 20100428
  Transmission Date: 20101027
  Serious: Yes (Hospitalization)
  Sender: FDA-Public Use
  Company Number: US-GILEAD-2010-0028824

PATIENT
  Sex: Female

DRUGS (8)
  1. LETAIRIS [Suspect]
     Indication: PULMONARY ARTERIAL HYPERTENSION
     Route: 048
     Dates: start: 20100324, end: 20100404
  2. COUMADIN [Concomitant]
  3. AMIODARONE HCL [Concomitant]
  4. VIVELLE-DOT [Concomitant]
  5. POTASSIUM CHLORIDE [Concomitant]
  6. KLOR-CON [Concomitant]
  7. VITAMIN C [Concomitant]
  8. VITAMIN D [Concomitant]

REACTIONS (4)
  - ASTHENIA [None]
  - NAUSEA [None]
  - PALPITATIONS [None]
  - RECTAL HAEMORRHAGE [None]
